FAERS Safety Report 24618866 (Version 1)
Quarter: 2024Q4

REPORT INFORMATION
  Report Type: Spontaneous
  Country: FR (occurrence: FR)
  Receive Date: 20241114
  Receipt Date: 20241114
  Transmission Date: 20250115
  Serious: Yes (Hospitalization)
  Sender: PFIZER
  Company Number: None

PATIENT
  Age: 31 Year
  Sex: Male

DRUGS (2)
  1. PIPERACILLIN SODIUM\TAZOBACTAM SODIUM [Suspect]
     Active Substance: PIPERACILLIN SODIUM\TAZOBACTAM SODIUM
     Indication: Postoperative wound infection
     Dosage: 4 G/0.5 G, 3X/DAY (EVERY 8 HOURS)
     Route: 042
     Dates: start: 20240930, end: 20241017
  2. DAPTOMYCIN [Suspect]
     Active Substance: DAPTOMYCIN
     Dosage: 500 MG, 3X/DAY (EVERY 8 HOURS)
     Dates: start: 20240930, end: 20241017

REACTIONS (1)
  - Agranulocytosis [Recovering/Resolving]

NARRATIVE: CASE EVENT DATE: 20241017
